FAERS Safety Report 5932830-9 (Version None)
Quarter: 2008Q4

REPORT INFORMATION
  Report Type: 
  Country: None (occurrence: None)
  Receive Date: 20081027
  Receipt Date: 20081027
  Transmission Date: 20090506
  Serious: Yes (Hospitalization)
  Sender: FDA-Public Use
  Company Number: None

PATIENT
  Sex: Female
  Weight: 93 kg

DRUGS (13)
  1. MERCAPTOPURINE [Suspect]
     Dosage: 3400 MG
     Dates: start: 20071212, end: 20081014
  2. METHOTREXATE [Suspect]
     Dosage: 160 MG
     Dates: end: 20081008
  3. VINCRISTINE [Suspect]
     Dosage: 0 MG
     Dates: end: 20070724
  4. DEXAMETHASONE 0.5MG TAB [Suspect]
     Dosage: 60MG
     Dates: end: 20080921
  5. ACYCLOVIR [Concomitant]
  6. CALCIUM [Concomitant]
  7. MAGNESIUM SULFATE [Concomitant]
  8. PENTAMIDINE NEBULIZER [Concomitant]
  9. POTASSIUM CHLORIDE [Concomitant]
  10. PROTONIX [Concomitant]
  11. SYNTHROID [Concomitant]
  12. VITAMIN D [Concomitant]
  13. ZOLOFT [Concomitant]

REACTIONS (8)
  - BACTERIA STOOL IDENTIFIED [None]
  - CHILLS [None]
  - CLOSTRIDIAL INFECTION [None]
  - DIARRHOEA [None]
  - FATIGUE [None]
  - HEADACHE [None]
  - PNEUMONIA [None]
  - PYREXIA [None]
